FAERS Safety Report 10277954 (Version 1)
Quarter: 2014Q3

REPORT INFORMATION
  Report Type: Spontaneous
  Country: US (occurrence: US)
  Receive Date: 20140704
  Receipt Date: 20140704
  Transmission Date: 20150326
  Serious: No
  Sender: FDA-Public Use
  Company Number: US-009507513-1406USA011697

PATIENT
  Age: 53 Year
  Sex: Male

DRUGS (1)
  1. PEGINTRON [Suspect]
     Active Substance: PEGINTERFERON ALFA-2B
     Dosage: UNK, QW
     Route: 058

REACTIONS (4)
  - Pain [Unknown]
  - Drug dose omission [Unknown]
  - Pyrexia [Unknown]
  - Nausea [Unknown]

NARRATIVE: CASE EVENT DATE: 20140620
